FAERS Safety Report 12921507 (Version 2)
Quarter: 2016Q4

REPORT INFORMATION
  Report Type: Spontaneous
  Country: US (occurrence: US)
  Receive Date: 20161108
  Receipt Date: 20161110
  Transmission Date: 20170207
  Serious: Yes (Death)
  Sender: FDA-Public Use
  Company Number: US-PFIZER INC-2016514379

PATIENT
  Age: 87 Year
  Sex: Male

DRUGS (6)
  1. MICAFUNGIN [Suspect]
     Active Substance: MICAFUNGIN
     Indication: PNEUMONIA
     Dosage: UNK
  2. PIPERACILLIN/TAZOBACTAM [Suspect]
     Active Substance: PIPERACILLIN SODIUM\TAZOBACTAM SODIUM
     Indication: DECUBITUS ULCER
  3. SULFAMETHOXAZOLE/TRIMETHOPRIM [Suspect]
     Active Substance: SULFAMETHOXAZOLE\TRIMETHOPRIM
     Indication: PNEUMONIA
     Dosage: UNK
  4. VANCOMYCIN HCL [Suspect]
     Active Substance: VANCOMYCIN HYDROCHLORIDE
     Indication: PNEUMONIA
     Dosage: UNK
     Route: 042
  5. CILASTATIN/IMIPENEM [Suspect]
     Active Substance: CILASTATIN SODIUM\IMIPENEM
     Indication: PNEUMONIA
     Dosage: UNK
  6. FLUCONAZOLE. [Suspect]
     Active Substance: FLUCONAZOLE
     Indication: PNEUMONIA
     Dosage: UNK

REACTIONS (11)
  - Candida test positive [None]
  - Pulmonary alveolar haemorrhage [None]
  - Drug ineffective [Fatal]
  - Multiple organ dysfunction syndrome [None]
  - Burkholderia cepacia complex infection [None]
  - Acute kidney injury [None]
  - Diffuse alveolar damage [None]
  - Bacteraemia [None]
  - Acute respiratory distress syndrome [None]
  - Blood pressure systolic increased [None]
  - Pulmonary oedema [None]
